FAERS Safety Report 13347484 (Version 5)
Quarter: 2018Q2

REPORT INFORMATION
  Report Type: Report from Study
  Country: US (occurrence: US)
  Receive Date: 20170317
  Receipt Date: 20180423
  Transmission Date: 20180711
  Serious: Yes (Other)
  Sender: FDA-Public Use
  Company Number: PHEH2017US007996

PATIENT
  Age: 47 Year
  Sex: Female
  Weight: 90.71 kg

DRUGS (1)
  1. COSENTYX [Suspect]
     Active Substance: SECUKINUMAB
     Indication: ANKYLOSING SPONDYLITIS
     Dosage: 150 MG, QMO
     Route: 058
     Dates: start: 20170216

REACTIONS (7)
  - Inappropriate schedule of drug administration [Unknown]
  - Arthritis [Unknown]
  - Hypersensitivity [Unknown]
  - Limb injury [Unknown]
  - Rotator cuff syndrome [Unknown]
  - Viral infection [Unknown]
  - Drug ineffective [Unknown]

NARRATIVE: CASE EVENT DATE: 20170216
